FAERS Safety Report 13340260 (Version 3)
Quarter: 2017Q2

REPORT INFORMATION
  Report Type: Report from Study
  Country: US (occurrence: US)
  Receive Date: 20170316
  Receipt Date: 20170519
  Transmission Date: 20170830
  Serious: Yes (Other)
  Sender: FDA-Public Use
  Company Number: US-ALEXION PHARMACEUTICALS INC.-A201702495

PATIENT
  Sex: Male

DRUGS (1)
  1. STRENSIQ [Suspect]
     Active Substance: ASFOTASE ALFA
     Indication: HYPOPHOSPHATASIA
     Route: 058

REACTIONS (10)
  - Neuropathy peripheral [Unknown]
  - Endocrine disorder [Unknown]
  - Complex regional pain syndrome [Unknown]
  - Fall [Unknown]
  - Ligament sprain [Unknown]
  - Loss of consciousness [Unknown]
  - Oedema [Unknown]
  - Orthostatic hypotension [Unknown]
  - Bone disorder [Unknown]
  - Pain [Unknown]
